FAERS Safety Report 8263582-8 (Version None)
Quarter: 2012Q2

REPORT INFORMATION
  Report Type: 
  Country: None (occurrence: None)
  Receive Date: 20120405
  Receipt Date: 20120327
  Transmission Date: 20120825
  Serious: Yes (Other)
  Sender: FDA-Public Use
  Company Number: US-ABBOTT-12P-163-0919154-00

PATIENT
  Age: 28 Year
  Sex: Female

DRUGS (8)
  1. HUMIRA [Suspect]
     Indication: CROHN'S DISEASE
     Route: 058
     Dates: start: 20110501
  2. HUMIRA [Suspect]
     Dates: start: 20120326
  3. VITAMIN B-12 [Concomitant]
     Indication: VITAMIN SUPPLEMENTATION
     Dosage: DAILY
  4. VITAMIN D [Concomitant]
     Indication: VITAMIN SUPPLEMENTATION
  5. LEVOTHYROXINE SODIUM [Concomitant]
     Indication: THYROIDECTOMY
     Dosage: DAILY
  6. CLARITIN [Concomitant]
     Indication: HYPERSENSITIVITY
  7. THIOGUANINE [Concomitant]
     Indication: CROHN'S DISEASE
     Dosage: DAILY
  8. MULTI-VITAMINS [Concomitant]
     Indication: PREGNANCY

REACTIONS (1)
  - ABSCESS DRAINAGE [None]
